FAERS Safety Report 19706353 (Version 1)
Quarter: 2021Q3

REPORT INFORMATION
  Report Type: Spontaneous
  Country: US (occurrence: US)
  Receive Date: 20210816
  Receipt Date: 20210816
  Transmission Date: 20211014
  Serious: No
  Sender: FDA-Public Use
  Company Number: None

PATIENT
  Age: 51 Year
  Sex: Male
  Weight: 90 kg

DRUGS (2)
  1. AZITHROMYCIN (AZITHROMYCIN 250MG TAB) [Suspect]
     Active Substance: AZITHROMYCIN
     Indication: PNEUMONIA
     Route: 048
     Dates: start: 20210814, end: 20210814
  2. REGEN?COV [Suspect]
     Active Substance: CASIRIVIMAB\IMDEVIMAB
     Indication: COVID-19 PNEUMONIA
     Route: 042
     Dates: start: 20210814, end: 20210814

REACTIONS (5)
  - Infusion related reaction [None]
  - Retching [None]
  - Hypoxia [None]
  - Vomiting [None]
  - Nausea [None]

NARRATIVE: CASE EVENT DATE: 20210814
